FAERS Safety Report 9366982 (Version 1)
Quarter: 2013Q2

REPORT INFORMATION
  Report Type: Spontaneous
  Country: IN (occurrence: IN)
  Receive Date: 20130625
  Receipt Date: 20130625
  Transmission Date: 20140414
  Serious: Yes (Death, Hospitalization)
  Sender: FDA-Public Use
  Company Number: IN-GLAXOSMITHKLINE-B0901784A

PATIENT
  Age: 60 Year
  Sex: Male

DRUGS (1)
  1. SERETIDE [Suspect]
     Indication: CHRONIC OBSTRUCTIVE PULMONARY DISEASE
     Route: 055

REACTIONS (7)
  - Death [Fatal]
  - Pneumonia [Unknown]
  - Lung neoplasm malignant [Unknown]
  - Pleural effusion [Unknown]
  - Dyspnoea [Unknown]
  - Hypotension [Unknown]
  - Asthenia [Unknown]
